FAERS Safety Report 12245832 (Version 1)
Quarter: 2016Q2

REPORT INFORMATION
  Report Type: Other
  Country: US (occurrence: IL)
  Receive Date: 20160407
  Receipt Date: 20160407
  Transmission Date: 20160815
  Serious: Yes (Other)
  Sender: FDA-Public Use
  Company Number: IL-FRI-1000083868

PATIENT

DRUGS (1)
  1. ASENAPINE [Suspect]
     Active Substance: ASENAPINE
     Indication: MANIA
     Dosage: 10 MG
     Route: 060

REACTIONS (3)
  - Chest discomfort [Unknown]
  - Electrocardiogram QT prolonged [Unknown]
  - Gait disturbance [Unknown]
